FAERS Safety Report 17442471 (Version 1)
Quarter: 2020Q1

REPORT INFORMATION
  Report Type: Other
  Country: IT (occurrence: IT)
  Receive Date: 20200220
  Receipt Date: 20200220
  Transmission Date: 20200409
  Serious: Yes (Other)
  Sender: FDA-Public Use
  Company Number: IT-TAIHO ONCOLOGY  INC-IM-2020-00232

PATIENT
  Age: 58 Year
  Sex: Female

DRUGS (1)
  1. LONSURF [Suspect]
     Active Substance: TIPIRACIL HYDROCHLORIDE\TRIFLURIDINE
     Indication: COLON CANCER
     Dosage: 20 MG
     Route: 048
     Dates: start: 20191010

REACTIONS (4)
  - Anaemia [Recovering/Resolving]
  - Leukopenia [Recovering/Resolving]
  - Constipation [Recovering/Resolving]
  - Neutropenia [Recovering/Resolving]

NARRATIVE: CASE EVENT DATE: 20191112
